FAERS Safety Report 5047849-2 (Version None)
Quarter: 2006Q3

REPORT INFORMATION
  Report Type: 
  Country: None (occurrence: None)
  Receive Date: 20060706
  Receipt Date: 20060706
  Transmission Date: 20061208
  Serious: No
  Sender: FDA-Public Use
  Company Number: None

PATIENT

DRUGS (1)
  1. SENSORCAINE [Suspect]
     Indication: EPIDURAL ANAESTHESIA
     Dosage: EPIDURAL
     Route: 008
     Dates: start: 20060501, end: 20060630

REACTIONS (1)
  - DRUG INEFFECTIVE [None]
